FAERS Safety Report 10404358 (Version 1)
Quarter: 2014Q1

REPORT INFORMATION
  Report Type: Spontaneous
  Country: US (occurrence: None)
  Receive Date: 20140228
  Receipt Date: 20140228
  Transmission Date: 20141002
  Serious: No
  Sender: FDA-Public Use
  Company Number: 224724 LEO

PATIENT
  Age: 57 Year
  Sex: Female

DRUGS (1)
  1. PICATO (INGENOL MEBUTATE) (0.05 %, GEL) [Suspect]
     Indication: ACTINIC KERATOSIS
     Dosage: (ONCE DAILY FOR 2 DAYS), TOPICAL
     Route: 061

REACTIONS (13)
  - Gait disturbance [None]
  - Application site vesicles [None]
  - Blister [None]
  - Application site pain [None]
  - Pain [None]
  - Application site erythema [None]
  - Erythema [None]
  - Feeling hot [None]
  - Swelling [None]
  - Application site scab [None]
  - Scab [None]
  - Pyrexia [None]
  - Drug administered at inappropriate site [None]
